FAERS Safety Report 20771813 (Version 1)
Quarter: 2022Q2

REPORT INFORMATION
  Report Type: Spontaneous
  Country: US (occurrence: US)
  Receive Date: 20220430
  Receipt Date: 20220430
  Transmission Date: 20220720
  Serious: Yes (Other)
  Sender: FDA-Public Use
  Company Number: US-drreddys-LIT/USA/22/0149386

PATIENT
  Age: 71 Year
  Sex: Male

DRUGS (12)
  1. DIPHENHYDRAMINE HYDROCHLORIDE [Suspect]
     Active Substance: DIPHENHYDRAMINE HYDROCHLORIDE
     Indication: Transient acantholytic dermatosis
  2. CETIRIZINE [Suspect]
     Active Substance: CETIRIZINE HYDROCHLORIDE
     Indication: Transient acantholytic dermatosis
  3. GABAPENTIN [Suspect]
     Active Substance: GABAPENTIN
     Indication: Transient acantholytic dermatosis
  4. TRIAMCINOLONE [Suspect]
     Active Substance: TRIAMCINOLONE
     Indication: Transient acantholytic dermatosis
  5. PREDNISONE [Suspect]
     Active Substance: PREDNISONE
     Indication: Transient acantholytic dermatosis
  6. PREDNISONE [Suspect]
     Active Substance: PREDNISONE
     Dosage: PREDNISONE 60MG WITH TAPERING FOR 8 DAYS
     Route: 048
  7. HYDROXYZINE [Suspect]
     Active Substance: HYDROXYZINE HYDROCHLORIDE
     Indication: Transient acantholytic dermatosis
  8. APREPITANT [Suspect]
     Active Substance: APREPITANT
     Indication: Transient acantholytic dermatosis
  9. IPILIMUMAB [Concomitant]
     Active Substance: IPILIMUMAB
     Indication: Metastatic renal cell carcinoma
     Dosage: 4 DOSES OF NIVOLUMAB AND IPILIMUMAB
  10. IPILIMUMAB [Concomitant]
     Active Substance: IPILIMUMAB
     Dosage: RESTARTED ON IMMUNOTHERAPY WITH NIVOLUMAB AND IPILIMUMAB
  11. NIVOLUMAB [Concomitant]
     Active Substance: NIVOLUMAB
     Indication: Metastatic renal cell carcinoma
     Dosage: 4 DOSES OF NIVOLUMAB AND IPILIMUMAB?DISCONTINUED 4 MONTHS AFTER THE ONSET OF SYMPTOMS
  12. NIVOLUMAB [Concomitant]
     Active Substance: NIVOLUMAB
     Dosage: RESTARTED ON IMMUNOTHERAPY WITH NIVOLUMAB AND IPILIMUMAB

REACTIONS (1)
  - Drug ineffective [Unknown]
